FAERS Safety Report 20188356 (Version 1)
Quarter: 2021Q4

REPORT INFORMATION
  Report Type: Spontaneous
  Country: GB (occurrence: None)
  Receive Date: 20211215
  Receipt Date: 20211215
  Transmission Date: 20220303
  Serious: Yes (Other)
  Sender: FDA-Public Use
  Company Number: 2021A859577

PATIENT
  Age: 77 Year
  Sex: Male
  Weight: 110 kg

DRUGS (12)
  1. ACLIDINIUM BROMIDE\FORMOTEROL FUMARATE [Suspect]
     Active Substance: ACLIDINIUM BROMIDE\FORMOTEROL FUMARATE
     Dosage: 340MICROGRAMS/DOSE / 12MICROGRAMS/DOSE TWO TIMES A DAY
     Route: 055
     Dates: start: 20211123
  2. BETAHISTINE [Concomitant]
     Active Substance: BETAHISTINE
     Dosage: TAKE ONE- TWO THREE TIMES DAILY
     Route: 065
     Dates: start: 20210315
  3. TIOTROPIUM BROMIDE [Concomitant]
     Active Substance: TIOTROPIUM BROMIDE
     Dosage: DAILY
     Route: 065
     Dates: start: 20210222, end: 20211123
  4. CARBOCYSTEINE [Concomitant]
     Active Substance: CARBOCYSTEINE
     Dosage: DAILY
     Route: 065
     Dates: start: 20210222
  5. CLOPIDOGREL [Concomitant]
     Active Substance: CLOPIDOGREL BISULFATE
     Dosage: DAILY
     Route: 065
     Dates: start: 20210222
  6. FINASTERIDE [Concomitant]
     Active Substance: FINASTERIDE
     Dosage: DAILY TO SHRINK PROSTATE
     Route: 065
     Dates: start: 20210222
  7. LACTULOSE [Concomitant]
     Active Substance: LACTULOSE
     Dosage: TWO TIMES A DAY
     Route: 065
     Dates: start: 20210222, end: 20211116
  8. LORATADINE [Concomitant]
     Active Substance: LORATADINE
     Dosage: DAILY
     Route: 065
     Dates: start: 20210222, end: 20211116
  9. OMEPRAZOLE [Concomitant]
     Active Substance: OMEPRAZOLE
     Dosage: DAILY
     Route: 065
     Dates: start: 20210222
  10. PROPRANOLOL [Concomitant]
     Active Substance: PROPRANOLOL HYDROCHLORIDE
     Dosage: DAILY
     Route: 065
     Dates: start: 20210222
  11. ALBUTEROL [Concomitant]
     Active Substance: ALBUTEROL
     Route: 065
     Dates: start: 20210222
  12. TRAMADOL [Concomitant]
     Active Substance: TRAMADOL
     Dosage: TAKE ONE OR TWO A DAY
     Route: 065
     Dates: start: 20210222

REACTIONS (3)
  - Urticaria [Recovered/Resolved]
  - Oropharyngeal pain [Unknown]
  - Secretion discharge [Unknown]

NARRATIVE: CASE EVENT DATE: 20211201
